FAERS Safety Report 22541221 (Version 1)
Quarter: 2023Q2

REPORT INFORMATION
  Report Type: Spontaneous
  Country: GB (occurrence: GB)
  Receive Date: 20230609
  Receipt Date: 20230609
  Transmission Date: 20230722
  Serious: Yes (Other)
  Sender: FDA-Public Use
  Company Number: None

PATIENT
  Age: 44 Year
  Sex: Female
  Weight: 47 kg

DRUGS (11)
  1. DOXYCYCLINE [Suspect]
     Active Substance: DOXYCYCLINE
     Dosage: UNK
     Dates: start: 20230606
  2. AMOXICILLIN [Concomitant]
     Active Substance: AMOXICILLIN
     Dosage: ONE CAPSULE THREE TIMES A DAY
     Dates: start: 20230606
  3. DOXYCYCLINE [Concomitant]
     Active Substance: DOXYCYCLINE
     Dosage: TAKE TWO CAPSULES NOW AND THEN ONE CAPSULE ONCE...
     Dates: start: 20230605
  4. FOLIC ACID [Concomitant]
     Active Substance: FOLIC ACID
     Dosage: TAKE ONE TABLET 6 DAYS PER WEEK
     Dates: start: 20180228
  5. BECLOMETHASONE\FORMOTEROL [Concomitant]
     Active Substance: BECLOMETHASONE\FORMOTEROL
     Dosage: ONE TO TWO PUFFS TWICE A DAY
     Dates: start: 20220622
  6. HYDROXYCHLOROQUINE SULFATE [Concomitant]
     Active Substance: HYDROXYCHLOROQUINE SULFATE
     Dosage: 1 AND 2 ON ALTERNATE DAYS AS PER RHEUMATOLOGY C...
     Dates: start: 20150930
  7. METHOTREXATE [Concomitant]
     Active Substance: METHOTREXATE
     Dosage: INJECT WEEKLY
     Route: 058
     Dates: start: 20190430
  8. MONTELUKAST [Concomitant]
     Active Substance: MONTELUKAST SODIUM
     Dosage: TAKE ONE AT NIGHT
     Dates: start: 20141118
  9. OMEPRAZOLE [Concomitant]
     Active Substance: OMEPRAZOLE
     Dosage: 1 TO 2 CAPSULES DAILY, AS NEEDED
     Dates: start: 20200827
  10. PENTASA [Concomitant]
     Active Substance: MESALAMINE
     Dosage: TAKE EIGHT (TOTAL OF 4G), DAILY
     Dates: start: 20140328
  11. ALBUTEROL [Concomitant]
     Active Substance: ALBUTEROL
     Dosage: 2 DOSES AS NEEDED
     Route: 055
     Dates: start: 20140623

REACTIONS (2)
  - Vomiting [Recovered/Resolved]
  - Illness [Recovered/Resolved]

NARRATIVE: CASE EVENT DATE: 20230606
